FAERS Safety Report 5916029-8 (Version None)
Quarter: 2008Q4

REPORT INFORMATION
  Report Type: 
  Country: None (occurrence: None)
  Receive Date: 20081013
  Receipt Date: 20081008
  Transmission Date: 20090506
  Serious: Yes (Other)
  Sender: FDA-Public Use
  Company Number: US-ELI_LILLY_AND_COMPANY-US200807000580

PATIENT
  Sex: Male
  Weight: 92.4 kg

DRUGS (14)
  1. EXENATIDE [Suspect]
     Indication: TYPE 2 DIABETES MELLITUS
     Dosage: 10 UG, 2/D
     Route: 058
     Dates: start: 20070702, end: 20080721
  2. PLACEBO [Suspect]
     Indication: TYPE 2 DIABETES MELLITUS
     Dosage: 10 UG, 2/D
     Route: 058
     Dates: start: 20070702
  3. METFORMIN HCL [Concomitant]
     Dosage: 1000 MG, UNK
  4. ZOCOR [Concomitant]
     Dosage: 5 MG, UNK
  5. MICARDIS [Concomitant]
     Dosage: 80 MG, UNK
  6. WELLBATRIN [Concomitant]
     Dosage: 150 MG, UNK
  7. LORIDINE [Concomitant]
     Dosage: 10 MG, UNK
  8. ASPIRIN [Concomitant]
     Dosage: 81 MG, UNK
  9. ALFUZOSIN HCL [Concomitant]
     Dosage: 10 MG, UNK
  10. ALEVE [Concomitant]
     Dosage: UNK, AS NEEDED
  11. MULTI-VITAMINS [Concomitant]
  12. IRON [Concomitant]
  13. SAW PALMETTO [Concomitant]
  14. LACTAID [Concomitant]
     Dosage: UNK, AS NEEDED

REACTIONS (2)
  - CHRONIC MYELOID LEUKAEMIA [None]
  - NEUTROPHIL COUNT INCREASED [None]
